FAERS Safety Report 21335014 (Version 1)
Quarter: 2022Q3

REPORT INFORMATION
  Report Type: Spontaneous
  Country: US (occurrence: None)
  Receive Date: 20220914
  Receipt Date: 20220914
  Transmission Date: 20221026
  Serious: Yes (Hospitalization)
  Sender: FDA-Public Use
  Company Number: None

PATIENT
  Age: 58 Year
  Sex: Female

DRUGS (2)
  1. CUVITRU [Suspect]
     Active Substance: HUMAN IMMUNOGLOBULIN G
     Indication: Immunodeficiency
     Dosage: OTHER QUANTITY : 10GM/50ML;?FREQUENCY : AS DIRECTED;?WITHDRAW 70 ML INTO TWO 50ML SYRINGES. INFUSE 7
     Route: 058
     Dates: start: 20201216
  2. CUVITRU [Suspect]
     Active Substance: HUMAN IMMUNOGLOBULIN G
     Dosage: OTHER QUANTITY : 70ML (14);?FREQUENCY : AS DIRECTED;?
     Route: 058

REACTIONS (2)
  - Back disorder [None]
  - Product dose omission issue [None]

NARRATIVE: CASE EVENT DATE: 20220902
